FAERS Safety Report 8521299-6 (Version None)
Quarter: 2012Q3

REPORT INFORMATION
  Report Type: 
  Country: None (occurrence: None)
  Receive Date: 20120719
  Receipt Date: 20120713
  Transmission Date: 20120928
  Serious: Yes (Death, Other)
  Sender: FDA-Public Use
  Company Number: US-BAYER-200940587NA

PATIENT
  Age: 73 Year
  Sex: Female
  Weight: 49.887 kg

DRUGS (28)
  1. TRAZODONE HYDROCHLORIDE [Concomitant]
     Dosage: UNK
     Route: 048
     Dates: start: 20040316
  2. TRIAMCINOLONE [Concomitant]
     Dosage: UNK
     Route: 061
     Dates: start: 20040427
  3. HEPARIN [Concomitant]
  4. DOXEPIN [Concomitant]
  5. SYNTHROID [Concomitant]
     Dosage: 112 MCG , QD
  6. OMNIPAQUE 140 [Concomitant]
     Indication: CATHETERISATION CARDIAC
     Dosage: 200 ML, UNK
     Dates: start: 20040519
  7. FUROSEMIDE [Concomitant]
     Dosage: UNK
     Dates: start: 19900101
  8. POTASSIUM CHLORIDE [Concomitant]
     Dosage: 20 MEQ, QD
  9. TRASYLOL [Suspect]
     Indication: TRICUSPID VALVE REPAIR
  10. FOSAMAX [Concomitant]
     Dosage: UNK UNK, QD
  11. CALCIUM [Concomitant]
  12. TRASYLOL [Suspect]
     Indication: MITRAL VALVE REPLACEMENT
     Dosage: 10,0000 KIU TIMES 3
     Route: 042
     Dates: start: 20040618
  13. LISINOPRIL [Concomitant]
     Dosage: UNK
     Dates: start: 19800101
  14. LASIX [Concomitant]
     Dosage: 40 MG, UNK
     Route: 048
  15. ALDACTONE [Concomitant]
     Dosage: 25 MG, QD
     Route: 048
  16. AZITHROMYCIN [Concomitant]
     Indication: ANTIBIOTIC PROPHYLAXIS
     Dosage: 500 MG, QD
     Route: 048
     Dates: end: 20040216
  17. AVELOX [Concomitant]
     Indication: ANTIBIOTIC PROPHYLAXIS
     Dosage: 400 MG, UNK
     Route: 048
     Dates: end: 20040301
  18. BIAXIN [Concomitant]
     Indication: ANTIBIOTIC PROPHYLAXIS
     Dosage: UNK
     Route: 048
     Dates: start: 20040201, end: 20040201
  19. BENZONATATE [Concomitant]
     Dosage: UNK
     Route: 048
     Dates: start: 20040525
  20. SODIUM BICARBONATE [Concomitant]
  21. LASIX [Concomitant]
     Dosage: UNK
     Dates: start: 19900101
  22. IBUPROFEN [Concomitant]
     Route: 048
  23. ZANTAC [Concomitant]
     Dosage: 150 MG, QD
     Route: 048
  24. COUMADIN [Concomitant]
     Dosage: UNK UNK, QD
  25. TRASYLOL [Suspect]
     Indication: ATRIAL SEPTAL DEFECT REPAIR
  26. ASPIRIN [Concomitant]
  27. DOPAMINE HCL [Concomitant]
     Dosage: 5MCG/KG/MIN
     Dates: start: 20040618
  28. TEMAZEPAM [Concomitant]

REACTIONS (13)
  - FEAR [None]
  - DEATH [None]
  - ANHEDONIA [None]
  - MULTI-ORGAN FAILURE [None]
  - INJURY [None]
  - UNEVALUABLE EVENT [None]
  - RENAL FAILURE [None]
  - STRESS [None]
  - RENAL IMPAIRMENT [None]
  - ANXIETY [None]
  - RENAL INJURY [None]
  - EMOTIONAL DISTRESS [None]
  - PAIN [None]
